FAERS Safety Report 19949596 (Version 2)
Quarter: 2021Q4

REPORT INFORMATION
  Report Type: Report from Study
  Country: US (occurrence: US)
  Receive Date: 20211013
  Receipt Date: 20211025
  Transmission Date: 20220303
  Serious: Yes (Hospitalization, Disabling, Other)
  Sender: FDA-Public Use
  Company Number: US-BAUSCH-BL-2021-033820

PATIENT
  Age: 70 Year
  Sex: Male
  Weight: 122.58 kg

DRUGS (8)
  1. ATIVAN [Suspect]
     Active Substance: LORAZEPAM
     Indication: Depression
     Dosage: ABOUT 40 YEARS
     Route: 065
     Dates: start: 1981
  2. ATIVAN [Suspect]
     Active Substance: LORAZEPAM
     Indication: Anxiety
  3. AMLODIPINE BESYLATE\BENAZEPRIL HYDROCHLORIDE [Concomitant]
     Active Substance: AMLODIPINE BESYLATE\BENAZEPRIL HYDROCHLORIDE
     Indication: Product used for unknown indication
  4. BENAZEPRIL [Concomitant]
     Active Substance: BENAZEPRIL HYDROCHLORIDE
     Indication: Product used for unknown indication
  5. TAMSULOSIN [Concomitant]
     Active Substance: TAMSULOSIN
     Indication: Product used for unknown indication
  6. OMEPRAZOLE [Concomitant]
     Active Substance: OMEPRAZOLE
     Indication: Product used for unknown indication
  7. FLUTICASONE PROPIONATE [Concomitant]
     Active Substance: FLUTICASONE PROPIONATE
     Indication: Product used for unknown indication
     Dosage: SEASONAL WHEN NEEDED
  8. ACETAMINOPHEN [Concomitant]
     Active Substance: ACETAMINOPHEN
     Indication: Product used for unknown indication
     Dosage: 2-3 TIMES A DAY

REACTIONS (8)
  - Knee operation [Unknown]
  - Knee arthroplasty [Unknown]
  - Prostatic operation [Unknown]
  - Staphylococcal infection [Unknown]
  - Orthosis user [Unknown]
  - Arthritis [Unknown]
  - Ligament injury [Unknown]
  - Inability to afford medication [Unknown]

NARRATIVE: CASE EVENT DATE: 20180101
